FAERS Safety Report 8065673-3 (Version None)
Quarter: 2012Q1

REPORT INFORMATION
  Report Type: 
  Country: None (occurrence: None)
  Receive Date: 20120124
  Receipt Date: 20120116
  Transmission Date: 20120608
  Serious: Yes (Other)
  Sender: FDA-Public Use
  Company Number: US-BAYER-2011-033534

PATIENT
  Age: 24 Year
  Sex: Female
  Weight: 73 kg

DRUGS (7)
  1. PHENTERMINE [Concomitant]
     Indication: WEIGHT DECREASED
     Dosage: UNK
     Route: 048
     Dates: start: 20060701, end: 20060901
  2. OXYCODONE HCL AND ACETAMINOPHEN [Concomitant]
     Indication: PAIN
     Dosage: UNK UNK, PRN (AS NEEDED)
     Route: 048
     Dates: start: 20060601, end: 20061001
  3. LEXAPRO [Concomitant]
     Indication: BIPOLAR DISORDER
     Dosage: UNK UNK, QD (1 TABLET/DAILY)
     Route: 048
     Dates: start: 20040101, end: 20080101
  4. LAMICTAL [Concomitant]
     Indication: BIPOLAR DISORDER
     Dosage: UNK
     Dates: start: 20040101, end: 20080101
  5. ALPRAZOLAM [Concomitant]
     Indication: ANXIETY
     Dosage: UNK UNK, QD (ONCE DAILY)
     Route: 048
     Dates: start: 20050101, end: 20090101
  6. YASMIN [Suspect]
     Indication: PREMENSTRUAL SYNDROME
  7. YASMIN [Suspect]
     Indication: CONTRACEPTION
     Dosage: UNK
     Dates: start: 20060501, end: 20060901

REACTIONS (8)
  - EMOTIONAL DISTRESS [None]
  - GENERAL PHYSICAL HEALTH DETERIORATION [None]
  - DEEP VEIN THROMBOSIS [None]
  - PAIN [None]
  - PAIN IN EXTREMITY [None]
  - OEDEMA PERIPHERAL [None]
  - INJURY [None]
  - MENTAL DISORDER [None]
